FAERS Safety Report 12399260 (Version 2)
Quarter: 2016Q4

REPORT INFORMATION
  Report Type: Spontaneous
  Country: US (occurrence: US)
  Receive Date: 20160524
  Receipt Date: 20161028
  Transmission Date: 20170207
  Serious: Yes (Death, Hospitalization)
  Sender: FDA-Public Use
  Company Number: US-CELGENEUS-USA-2016053050

PATIENT
  Age: 53 Year
  Sex: Male

DRUGS (1)
  1. OTEZLA [Suspect]
     Active Substance: APREMILAST
     Indication: PRODUCT USED FOR UNKNOWN INDICATION
     Dosage: 60 MILLIGRAM
     Route: 048

REACTIONS (5)
  - Renal failure [Unknown]
  - Cardiac failure [Unknown]
  - Hypotension [Unknown]
  - Blood sodium decreased [Unknown]
  - Death [Fatal]

NARRATIVE: CASE EVENT DATE: 20160814
